FAERS Safety Report 9227239 (Version 2)
Quarter: 2013Q2

REPORT INFORMATION
  Report Type: Spontaneous
  Country: US (occurrence: US)
  Receive Date: 20130412
  Receipt Date: 20130612
  Transmission Date: 20140414
  Serious: Yes (Hospitalization)
  Sender: FDA-Public Use
  Company Number: US-ELI_LILLY_AND_COMPANY-US201209007312

PATIENT
  Age: 70 Year
  Sex: Female
  Weight: 51.25 kg

DRUGS (4)
  1. FORTEO [Suspect]
     Indication: OSTEOPOROSIS
     Dosage: 20 UG, QD
     Route: 058
     Dates: start: 20120924
  2. FORTEO [Suspect]
     Dosage: 20 UG, QD
     Route: 058
  3. MAGNESIUM [Concomitant]
     Dosage: UNK
     Dates: end: 201212
  4. SYNTHROID [Concomitant]
     Dosage: UNK

REACTIONS (9)
  - Lung adenocarcinoma [Recovering/Resolving]
  - Uterine cancer [Recovering/Resolving]
  - Back pain [Unknown]
  - Paraesthesia [Recovering/Resolving]
  - Skin irritation [Unknown]
  - Injection site injury [Unknown]
  - Injection site erythema [Not Recovered/Not Resolved]
  - Injection site bruising [Unknown]
  - Malaise [Unknown]
